FAERS Safety Report 15569014 (Version 2)
Quarter: 2019Q1

REPORT INFORMATION
  Report Type: Spontaneous
  Country: PT (occurrence: PT)
  Receive Date: 20181031
  Receipt Date: 20190125
  Transmission Date: 20190417
  Serious: Yes (Other)
  Sender: FDA-Public Use
  Company Number: PT-ACCORD-090623

PATIENT
  Sex: Female
  Weight: 71 kg

DRUGS (2)
  1. ENALAPRIL [Concomitant]
     Active Substance: ENALAPRIL
     Indication: HYPERTENSION
  2. SIMVASTATIN TEVA [Suspect]
     Active Substance: SIMVASTATIN
     Indication: PRODUCT USED FOR UNKNOWN INDICATION
     Dosage: 20MG 1X HE, COMPRESSED
     Route: 048
     Dates: start: 20171125

REACTIONS (2)
  - Dermatitis [Recovering/Resolving]
  - Pruritus [Recovered/Resolved]

NARRATIVE: CASE EVENT DATE: 20171125
